FAERS Safety Report 4423797-3 (Version None)
Quarter: 2004Q3

REPORT INFORMATION
  Report Type: 
  Country: None (occurrence: None)
  Receive Date: 20040719
  Receipt Date: 20040409
  Transmission Date: 20050211
  Serious: No
  Sender: FDA-Public Use
  Company Number: A03200401120

PATIENT
  Age: 73 Year
  Sex: Male

DRUGS (14)
  1. UROXATRAL [Suspect]
     Indication: BENIGN PROSTATIC HYPERPLASIA
     Dosage: 10 MG OD; ORAL
     Route: 048
     Dates: start: 20040401
  2. NAPROXEN SODIUM [Concomitant]
  3. SULFAMETHOXAZOLE + TRIMETHOPRIM [Concomitant]
  4. CETIRIZINE HCL [Concomitant]
  5. CALCIUM [Concomitant]
  6. VITAMIN C [Concomitant]
  7. MULTI-VITAMIN [Concomitant]
  8. VITAMIN E [Concomitant]
  9. ZINC [Concomitant]
  10. FISH OIL [Concomitant]
  11. CHROMIUM [Concomitant]
  12. GRAPE SEED [Concomitant]
  13. CRANBERRY [Concomitant]
  14. TILACTASE [Concomitant]

REACTIONS (1)
  - DRUG INEFFECTIVE [None]
